FAERS Safety Report 7161576-7 (Version None)
Quarter: 2010Q4

REPORT INFORMATION
  Report Type: 
  Country: None (occurrence: None)
  Receive Date: 20101215
  Receipt Date: 20101204
  Transmission Date: 20110411
  Serious: Yes (Hospitalization)
  Sender: FDA-Public Use
  Company Number: CA-JNJFOC-20101202917

PATIENT
  Sex: Male
  Weight: 68.04 kg

DRUGS (8)
  1. REMICADE [Suspect]
     Indication: ANKYLOSING SPONDYLITIS
     Route: 042
  2. TYLENOL (CAPLET) [Concomitant]
     Route: 048
  3. METOPROLOL [Concomitant]
     Route: 048
  4. FUROSEMIDE [Concomitant]
     Route: 048
  5. COUMADIN [Concomitant]
     Dosage: 4-5 MG. DAILY
     Route: 048
  6. ATACAND [Concomitant]
     Route: 048
  7. CRESTOR [Concomitant]
     Route: 048
  8. OXYCODONE [Concomitant]
     Dosage: PRN
     Route: 048

REACTIONS (1)
  - ATRIAL FIBRILLATION [None]
